FAERS Safety Report 8798756 (Version 1)
Quarter: 2012Q4

REPORT INFORMATION
  Report Type: 
  Country: CA (occurrence: CA)
  Receive Date: 20120920
  Receipt Date: 20120920
  Transmission Date: 20130627
  Serious: Yes (Other)
  Sender: FDA-Public Use
  Company Number: PHHY2012CA079759

PATIENT
  Sex: Female

DRUGS (7)
  1. ACLASTA [Suspect]
     Indication: OSTEOPOROSIS
     Route: 042
     Dates: start: 20110907
  2. ACLASTA [Suspect]
     Route: 042
     Dates: start: 20120906
  3. CRESTOR [Concomitant]
  4. CALCIUM [Concomitant]
  5. VITAMIN D [Concomitant]
  6. NEXIUM [Concomitant]
  7. MOTILIUM [Concomitant]

REACTIONS (6)
  - Vitreous floaters [Unknown]
  - Blood pressure increased [Unknown]
  - Ear pain [Unknown]
  - Skin discolouration [Not Recovered/Not Resolved]
  - Pain in jaw [Not Recovered/Not Resolved]
  - Headache [Unknown]
